FAERS Safety Report 7670800-3 (Version None)
Quarter: 2011Q3

REPORT INFORMATION
  Report Type: 
  Country: None (occurrence: None)
  Receive Date: 20110803
  Receipt Date: 20110727
  Transmission Date: 20111222
  Serious: Yes (Other)
  Sender: FDA-Public Use
  Company Number: DKLU1072198

PATIENT
  Age: 46 Year
  Sex: Female

DRUGS (5)
  1. LAMICTAL [Concomitant]
  2. TRILEPTAL [Concomitant]
  3. LORAZEPAM [Concomitant]
  4. CLONAZEPAM [Concomitant]
  5. SABRIL [Suspect]
     Indication: COMPLEX PARTIAL SEIZURES
     Dosage: 500 MG MILLIGRAM(S), 2 IN 1 D, ORAL
     Route: 048
     Dates: start: 20110501, end: 20110604

REACTIONS (3)
  - ARTHRALGIA [None]
  - DYSPNOEA [None]
  - OEDEMA PERIPHERAL [None]
